FAERS Safety Report 13284194 (Version 1)
Quarter: 2017Q1

REPORT INFORMATION
  Report Type: Spontaneous
  Country: US (occurrence: US)
  Receive Date: 20170301
  Receipt Date: 20170301
  Transmission Date: 20170428
  Serious: No
  Sender: FDA-Public Use
  Company Number: US-009507513-1702USA008456

PATIENT
  Sex: Female

DRUGS (1)
  1. NUVARING [Suspect]
     Active Substance: ETHINYL ESTRADIOL\ETONOGESTREL
     Dosage: 3 WEEKS IN, 1 WEEK OUT
     Route: 067
     Dates: start: 20160211, end: 20160212

REACTIONS (3)
  - Depressed mood [Unknown]
  - Anger [Unknown]
  - Mood altered [Unknown]

NARRATIVE: CASE EVENT DATE: 201602
